FAERS Safety Report 14733177 (Version 2)
Quarter: 2020Q1

REPORT INFORMATION
  Report Type: Spontaneous
  Country: US (occurrence: US)
  Receive Date: 20180409
  Receipt Date: 20200212
  Transmission Date: 20200409
  Serious: Yes (Life-Threatening, Other)
  Sender: FDA-Public Use
  Company Number: US-AUROBINDO-AUR-APL-2017-42946

PATIENT
  Age: 55 Year
  Sex: Male
  Weight: 97 kg

DRUGS (81)
  1. LIDOCAINE. [Suspect]
     Active Substance: LIDOCAINE
     Indication: INDUCTION OF ANAESTHESIA
     Dosage: 80 MILLIGRAM
  2. TESTOSTERONE. [Suspect]
     Active Substance: TESTOSTERONE
     Indication: PRODUCT USED FOR UNKNOWN INDICATION
     Dosage: (30 MG/1.5 ML)
     Route: 062
  3. FENTANYL. [Suspect]
     Active Substance: FENTANYL
     Dosage: 100 MICROGRAM
  4. ACETYLSALICYLIC ACID [Concomitant]
     Active Substance: ASPIRIN
  5. SCOPOLAMINE [Concomitant]
     Active Substance: SCOPOLAMINE
     Indication: PROPHYLAXIS OF NAUSEA AND VOMITING
     Dosage: 1.5 MILLIGRAM
     Route: 062
  6. MIDAZOLAM HYDROCHLORIDE. [Concomitant]
     Active Substance: MIDAZOLAM HYDROCHLORIDE
     Route: 042
  7. DIPHENHYDRAMINE. [Concomitant]
     Active Substance: DIPHENHYDRAMINE
     Dosage: 25 MILLIGRAM
  8. CLINDAMYCIN. [Concomitant]
     Active Substance: CLINDAMYCIN
     Route: 042
  9. SEVOFLURANE. [Concomitant]
     Active Substance: SEVOFLURANE
     Route: 055
  10. SEVOFLURANE. [Concomitant]
     Active Substance: SEVOFLURANE
     Dosage: 2% INSPIRED CONCENTRATION FOR 1 MINUTE
     Route: 055
  11. HYOSCINE [Concomitant]
     Active Substance: SCOPOLAMINE
     Dosage: 1.5 MILLIGRAM
     Route: 062
  12. HYOSCINE [Concomitant]
     Active Substance: SCOPOLAMINE
     Route: 062
  13. LIDOCAINE. [Suspect]
     Active Substance: LIDOCAINE
     Indication: INDUCTION OF ANAESTHESIA
     Dosage: 80 MILLIGRAM
  14. SUCCINYLCHOLINE [Suspect]
     Active Substance: SUCCINYLCHOLINE
     Indication: INDUCTION OF ANAESTHESIA
     Dosage: 140 MILLIGRAM
  15. PROPOFOL. [Suspect]
     Active Substance: PROPOFOL
     Indication: INDUCTION OF ANAESTHESIA
     Dosage: 200 MILLIGRAM
  16. DULOXETINE. [Concomitant]
     Active Substance: DULOXETINE
     Indication: PRODUCT USED FOR UNKNOWN INDICATION
     Dosage: 60 MILLIGRAM
  17. MIDAZOLAM HYDROCHLORIDE. [Concomitant]
     Active Substance: MIDAZOLAM HYDROCHLORIDE
     Dosage: 2 MILLIGRAM
     Route: 042
  18. HYDROMORPHONE [Concomitant]
     Active Substance: HYDROMORPHONE
     Route: 042
  19. CLINDAMYCIN. [Concomitant]
     Active Substance: CLINDAMYCIN
     Indication: PRODUCT USED FOR UNKNOWN INDICATION
     Dosage: 900 MILLIGRAM
     Route: 042
  20. SEVOFLURANE. [Concomitant]
     Active Substance: SEVOFLURANE
     Indication: PRODUCT USED FOR UNKNOWN INDICATION
     Dosage: 2% INSPIRED CONCENTRATION FOR 1 MINUTE
  21. OXYGEN. [Concomitant]
     Active Substance: OXYGEN
     Dosage: ()
  22. OXYGEN. [Concomitant]
     Active Substance: OXYGEN
     Dosage: ()
     Route: 055
  23. HYOSCINE [Concomitant]
     Active Substance: SCOPOLAMINE
     Indication: PROPHYLAXIS OF NAUSEA AND VOMITING
     Dosage: 1.5 MILLIGRAM
     Route: 062
  24. TESTOSTERONE. [Suspect]
     Active Substance: TESTOSTERONE
     Dosage: (30 MG/1.5 ML) ()
     Route: 062
  25. FENTANYL. [Suspect]
     Active Substance: FENTANYL
  26. PROPOFOL. [Suspect]
     Active Substance: PROPOFOL
     Dosage: 200 MILLIGRAM
  27. PROPOFOL. [Suspect]
     Active Substance: PROPOFOL
     Route: 042
  28. PROPOFOL. [Suspect]
     Active Substance: PROPOFOL
  29. TRAZODONE [Concomitant]
     Active Substance: TRAZODONE HYDROCHLORIDE
  30. PARACETAMOL [Concomitant]
     Active Substance: ACETAMINOPHEN
     Route: 048
  31. OXYGEN. [Concomitant]
     Active Substance: OXYGEN
     Route: 055
  32. SILDENAFIL. [Suspect]
     Active Substance: SILDENAFIL
     Indication: PRODUCT USED FOR UNKNOWN INDICATION
     Dosage: 100 MILLIGRAM
  33. SILDENAFIL. [Suspect]
     Active Substance: SILDENAFIL
  34. FENTANYL. [Suspect]
     Active Substance: FENTANYL
     Indication: INDUCTION OF ANAESTHESIA
     Dosage: 150 MICROGRAM
  35. FENTANYL. [Suspect]
     Active Substance: FENTANYL
  36. TRAMADOL. [Concomitant]
     Active Substance: TRAMADOL
  37. DULOXETINE. [Concomitant]
     Active Substance: DULOXETINE
     Dosage: ()
  38. ONDANSETRON [Concomitant]
     Active Substance: ONDANSETRON
     Dosage: 4 MILLIGRAM
     Route: 042
  39. ONDANSETRON [Concomitant]
     Active Substance: ONDANSETRON
     Dosage: 4 MILLIGRAM
     Route: 042
  40. DIPHENHYDRAMINE. [Concomitant]
     Active Substance: DIPHENHYDRAMINE
  41. HYOSCINE [Concomitant]
     Active Substance: SCOPOLAMINE
     Route: 062
  42. VALSARTAN AND HYDROCHLOROTHIAZIDE [Suspect]
     Active Substance: HYDROCHLOROTHIAZIDE\VALSARTAN
     Indication: PRODUCT USED FOR UNKNOWN INDICATION
  43. OMEPRAZOLE. [Concomitant]
     Active Substance: OMEPRAZOLE
  44. DESFLURANE. [Concomitant]
     Active Substance: DESFLURANE
     Indication: PRODUCT USED FOR UNKNOWN INDICATION
     Dosage: ()
  45. HYDROMORPHONE [Concomitant]
     Active Substance: HYDROMORPHONE
     Indication: PRODUCT USED FOR UNKNOWN INDICATION
     Dosage: 1 MILLIGRAM
     Route: 042
  46. HYDROMORPHONE [Concomitant]
     Active Substance: HYDROMORPHONE
     Dosage: 1 MILLIGRAM
     Route: 042
  47. ROCURONIUM BROMIDE. [Suspect]
     Active Substance: ROCURONIUM BROMIDE
     Indication: INDUCTION OF ANAESTHESIA
     Dosage: 5 MILLIGRAM
     Route: 065
  48. TESTOSTERONE. [Suspect]
     Active Substance: TESTOSTERONE
     Dosage: (30 MG/1.5 ML)
     Route: 062
  49. DULOXETINE. [Concomitant]
     Active Substance: DULOXETINE
  50. MIDAZOLAM HYDROCHLORIDE. [Concomitant]
     Active Substance: MIDAZOLAM HYDROCHLORIDE
     Dosage: 2 MILLIGRAM
     Route: 042
  51. DESFLURANE. [Concomitant]
     Active Substance: DESFLURANE
     Dosage: ()
  52. CLINDAMYCIN. [Concomitant]
     Active Substance: CLINDAMYCIN
     Dosage: 900 MILLIGRAM
     Route: 042
  53. LACTATED RINGERS SOLUTION [Concomitant]
     Active Substance: CALCIUM CHLORIDE\POTASSIUM CHLORIDE\SODIUM CHLORIDE\SODIUM LACTATE
     Indication: PRODUCT USED FOR UNKNOWN INDICATION
     Dosage: RINGER^S SOLUTION
     Route: 042
  54. SEVOFLURANE. [Concomitant]
     Active Substance: SEVOFLURANE
     Dosage: 2% INSPIRED CONCENTRATION FOR 1 MINUTE ()
     Route: 055
  55. OXYGEN. [Concomitant]
     Active Substance: OXYGEN
     Indication: PRODUCT USED FOR UNKNOWN INDICATION
  56. OXYGEN. [Concomitant]
     Active Substance: OXYGEN
     Dosage: ()
  57. TESTOSTERONE. [Suspect]
     Active Substance: TESTOSTERONE
     Dosage: (30 MG/1.5 ML) ()
     Route: 062
  58. PROPOFOL. [Suspect]
     Active Substance: PROPOFOL
     Dosage: 50 MICROGRAM/KILOGRAM
     Route: 042
  59. OXYCODONE AND ACETAMINOPHEN [Concomitant]
     Active Substance: ACETAMINOPHEN\OXYCODONE HYDROCHLORIDE
     Indication: PRODUCT USED FOR UNKNOWN INDICATION
  60. TRAMADOL. [Concomitant]
     Active Substance: TRAMADOL
     Indication: PRODUCT USED FOR UNKNOWN INDICATION
     Dosage: 50 MILLIGRAM
  61. DICLOFENAC [Concomitant]
     Active Substance: DICLOFENAC
  62. ACETYLSALICYLIC ACID [Concomitant]
     Active Substance: ASPIRIN
     Indication: PRODUCT USED FOR UNKNOWN INDICATION
     Dosage: 81 MILLIGRAM
  63. ONDANSETRON [Concomitant]
     Active Substance: ONDANSETRON
     Indication: PRODUCT USED FOR UNKNOWN INDICATION
     Dosage: 4 MILLIGRAM
     Route: 042
  64. PARACETAMOL [Concomitant]
     Active Substance: ACETAMINOPHEN
     Dosage: 500 MILLIGRAM
     Route: 048
  65. DIPHENHYDRAMINE. [Concomitant]
     Active Substance: DIPHENHYDRAMINE
     Indication: PRODUCT USED FOR UNKNOWN INDICATION
     Dosage: 25 MILLIGRAM
  66. HYDROMORPHONE [Concomitant]
     Active Substance: HYDROMORPHONE
     Dosage: 1 MILLIGRAM
     Route: 042
  67. CLINDAMYCIN. [Concomitant]
     Active Substance: CLINDAMYCIN
     Dosage: 900 MILLIGRAM
     Route: 042
  68. PROPOFOL. [Suspect]
     Active Substance: PROPOFOL
     Dosage: 50 MILLIGRAM
  69. PROPOFOL. [Suspect]
     Active Substance: PROPOFOL
  70. TRAZODONE [Concomitant]
     Active Substance: TRAZODONE HYDROCHLORIDE
     Indication: PRODUCT USED FOR UNKNOWN INDICATION
     Dosage: 150 MILLIGRAM
  71. DICLOFENAC [Concomitant]
     Active Substance: DICLOFENAC
     Indication: PRODUCT USED FOR UNKNOWN INDICATION
     Dosage: 75 MILLIGRAM
  72. OMEPRAZOLE. [Concomitant]
     Active Substance: OMEPRAZOLE
     Indication: PRODUCT USED FOR UNKNOWN INDICATION
     Dosage: 20 MILLIGRAM
  73. FAMOTIDINE. [Concomitant]
     Active Substance: FAMOTIDINE
     Indication: PRODUCT USED FOR UNKNOWN INDICATION
     Dosage: 20 MILLIGRAM
     Route: 042
  74. FAMOTIDINE. [Concomitant]
     Active Substance: FAMOTIDINE
     Route: 042
  75. ONDANSETRON [Concomitant]
     Active Substance: ONDANSETRON
     Route: 042
  76. SCOPOLAMINE [Concomitant]
     Active Substance: SCOPOLAMINE
     Dosage: 1.5 MILLIGRAM
     Route: 062
  77. PARACETAMOL [Concomitant]
     Active Substance: ACETAMINOPHEN
     Indication: ANALGESIC THERAPY
     Dosage: 500 MILLIGRAM
     Route: 048
  78. MIDAZOLAM HYDROCHLORIDE. [Concomitant]
     Active Substance: MIDAZOLAM HYDROCHLORIDE
     Indication: PRODUCT USED FOR UNKNOWN INDICATION
     Dosage: 2 MILLIGRAM
     Route: 042
  79. DIPHENHYDRAMINE. [Concomitant]
     Active Substance: DIPHENHYDRAMINE
     Dosage: 25 MILLIGRAM
  80. SEVOFLURANE. [Concomitant]
     Active Substance: SEVOFLURANE
     Dosage: 2% INSPIRED CONCENTRATION FOR 1 MINUTE ()
     Route: 055
  81. OXYGEN. [Concomitant]
     Active Substance: OXYGEN
     Dosage: ()
     Route: 055

REACTIONS (2)
  - Hypotension [Recovered/Resolved]
  - Left ventricular dysfunction [Unknown]
